FAERS Safety Report 10522358 (Version 1)
Quarter: 2014Q4

REPORT INFORMATION
  Report Type: Spontaneous
  Country: FR (occurrence: FR)
  Receive Date: 20141016
  Receipt Date: 20141016
  Transmission Date: 20150528
  Serious: Yes (Death, Hospitalization)
  Sender: FDA-Public Use
  Company Number: FR-ELI_LILLY_AND_COMPANY-FR201410003933

PATIENT
  Sex: Female
  Weight: 42 kg

DRUGS (1)
  1. CYMBALTA [Suspect]
     Active Substance: DULOXETINE HYDROCHLORIDE
     Indication: PRODUCT USED FOR UNKNOWN INDICATION
     Dosage: 1 DF, UNKNOWN
     Route: 048

REACTIONS (3)
  - Arthropathy [Recovered/Resolved]
  - Completed suicide [Fatal]
  - Overdose [Unknown]

NARRATIVE: CASE EVENT DATE: 2014
